FAERS Safety Report 8515898-5 (Version None)
Quarter: 2012Q3

REPORT INFORMATION
  Report Type: 
  Country: None (occurrence: None)
  Receive Date: 20120717
  Receipt Date: 20120716
  Transmission Date: 20120928
  Serious: Yes (Hospitalization, Other)
  Sender: FDA-Public Use
  Company Number: PHHY2012NL060697

PATIENT
  Sex: Male

DRUGS (1)
  1. DIOVAN HCT [Suspect]
     Dosage: 1 DF (160 MG VALS AND 12.5 MG HCTZ), QD

REACTIONS (10)
  - CARDIAC DISORDER [None]
  - SWELLING [None]
  - BLOOD PRESSURE DECREASED [None]
  - HYPERHIDROSIS [None]
  - LOSS OF CONSCIOUSNESS [None]
  - MONOPARESIS [None]
  - SENSATION OF HEAVINESS [None]
  - FALL [None]
  - CONCUSSION [None]
  - SKIN DISCOLOURATION [None]
